FAERS Safety Report 4994902-5 (Version None)
Quarter: 2006Q2

REPORT INFORMATION
  Report Type: 
  Country: None (occurrence: None)
  Receive Date: 20060508
  Receipt Date: 20060502
  Transmission Date: 20061013
  Serious: Yes (Hospitalization)
  Sender: FDA-Public Use
  Company Number: FR-AVENTIS-200611660FR

PATIENT
  Age: 59 Year
  Sex: Male
  Weight: 76 kg

DRUGS (8)
  1. LOVENOX [Suspect]
     Indication: CORONARY ARTERY SURGERY
     Route: 058
     Dates: start: 20060215
  2. ASPEGIC 1000 [Suspect]
     Indication: CORONARY ARTERY SURGERY
     Route: 048
     Dates: start: 20060215
  3. TAHOR [Suspect]
     Route: 048
     Dates: start: 20060221, end: 20060312
  4. NEXIUM [Suspect]
     Route: 048
     Dates: start: 20060215, end: 20060217
  5. SUFENTA [Suspect]
     Indication: CORONARY ARTERY SURGERY
     Route: 042
     Dates: start: 20060215
  6. PROPOFOL [Suspect]
     Indication: CORONARY ARTERY SURGERY
     Route: 042
     Dates: start: 20060215
  7. ACTRAPID [Concomitant]
     Indication: DIABETES MELLITUS NON-INSULIN-DEPENDENT
  8. CORDARONE [Concomitant]
     Dates: start: 20060101

REACTIONS (9)
  - ANURIA [None]
  - BACTERIAL INFECTION [None]
  - BLOOD CREATINE PHOSPHOKINASE INCREASED [None]
  - HAEMODIALYSIS [None]
  - METABOLIC ACIDOSIS [None]
  - MYOCARDIAL INFARCTION [None]
  - POST PROCEDURAL COMPLICATION [None]
  - RHABDOMYOLYSIS [None]
  - TRANSAMINASES INCREASED [None]
